FAERS Safety Report 5466042-2 (Version None)
Quarter: 2007Q3

REPORT INFORMATION
  Report Type: 
  Country: None (occurrence: None)
  Receive Date: 20070924
  Receipt Date: 20070920
  Transmission Date: 20080115
  Serious: Yes (Hospitalization)
  Sender: FDA-Public Use
  Company Number: FR-BOEHRINGER INGELHEIM PHARMACEUTICALS, INC.-2007-FF-00918FF

PATIENT
  Sex: Male

DRUGS (8)
  1. JOSIR [Suspect]
     Indication: URINARY RETENTION
     Route: 048
     Dates: start: 20070516, end: 20070618
  2. VANCOMYCIN [Concomitant]
     Indication: STAPHYLOCOCCAL INFECTION
     Route: 042
     Dates: start: 20070511, end: 20070616
  3. PYOSTACINE [Concomitant]
     Indication: STAPHYLOCOCCAL INFECTION
     Route: 048
     Dates: start: 20070514, end: 20070615
  4. LOVENOX [Concomitant]
     Indication: ANTIBIOTIC PROPHYLAXIS
     Route: 058
     Dates: start: 20070516, end: 20070619
  5. GAVISCON [Concomitant]
     Route: 048
     Dates: start: 20070508, end: 20070530
  6. LIPANTHYL [Concomitant]
     Indication: DYSLIPIDAEMIA
     Route: 048
     Dates: start: 20060101, end: 20070618
  7. IMOVANE [Concomitant]
     Indication: INSOMNIA
     Route: 048
     Dates: start: 20070508, end: 20070519
  8. HYZAAR [Concomitant]
     Dosage: ONE PER DAY
     Route: 048
     Dates: start: 20070530, end: 20070618

REACTIONS (2)
  - DRUG RASH WITH EOSINOPHILIA AND SYSTEMIC SYMPTOMS [None]
  - HYPERSENSITIVITY [None]
